FAERS Safety Report 4449490-9 (Version None)
Quarter: 2004Q3

REPORT INFORMATION
  Report Type: 
  Country: None (occurrence: None)
  Receive Date: 20040913
  Receipt Date: 20040822
  Transmission Date: 20050211
  Serious: Yes (Death)
  Sender: FDA-Public Use
  Company Number: DE-YAMANOUCHI-YEHQ20040276

PATIENT
  Age: 84 Year
  Sex: Male

DRUGS (1)
  1. ELIGARD [Suspect]
     Indication: PROSTATE CANCER
     Dosage: 22.5 MG, SC
     Route: 058
     Dates: start: 20040701, end: 20040701

REACTIONS (1)
  - CARDIAC FAILURE [None]
